FAERS Safety Report 14609928 (Version 2)
Quarter: 2018Q2

REPORT INFORMATION
  Report Type: Spontaneous
  Country: US (occurrence: US)
  Receive Date: 20180307
  Receipt Date: 20180523
  Transmission Date: 20180711
  Serious: Yes (Other)
  Sender: FDA-Public Use
  Company Number: US-BAYER-2018-040001

PATIENT
  Age: 15 Year
  Sex: Male

DRUGS (2)
  1. KOGENATE FS [Suspect]
     Active Substance: ANTIHEMOPHILIC FACTOR, HUMAN RECOMBINANT
     Indication: FACTOR VIII DEFICIENCY
     Dosage: 2500 U, TIW AND 4000 UNITS DAILY ON BLEEDS
     Route: 042
     Dates: start: 20030602
  2. KOGENATE FS [Suspect]
     Active Substance: ANTIHEMOPHILIC FACTOR, HUMAN RECOMBINANT
     Indication: FACTOR VIII DEFICIENCY
     Dosage: 2500 U, TIW AND 4000 UNITS DAILY ON BLEEDS
     Route: 042
     Dates: start: 20131119

REACTIONS (2)
  - Muscle haemorrhage [None]
  - Haemorrhage [None]
